FAERS Safety Report 6216944-4 (Version None)
Quarter: 2009Q2

REPORT INFORMATION
  Report Type: 
  Country: None (occurrence: None)
  Receive Date: 20090604
  Receipt Date: 20090526
  Transmission Date: 20091009
  Serious: Yes (Other)
  Sender: FDA-Public Use
  Company Number: OSCN-PR-0905S-0278

PATIENT
  Sex: Female

DRUGS (5)
  1. OMNISCAN [Suspect]
     Indication: DRUG USE FOR UNKNOWN INDICATION
     Dosage: UNSPECIFIED SINGLE GOSE
     Dates: start: 20050607, end: 20050607
  2. OMNISCAN [Suspect]
     Indication: DRUG USE FOR UNKNOWN INDICATION
     Dosage: UNSPECIFIED SINGLE GOSE
     Dates: start: 20060619, end: 20060619
  3. OMNISCAN [Suspect]
     Indication: DRUG USE FOR UNKNOWN INDICATION
     Dosage: UNSPECIFIED SINGLE GOSE
     Dates: start: 20080108, end: 20080108
  4. GADOPENTETATE DIMEGLUMINE (MAGNEVIST) [Concomitant]
  5. GADOLINIUM [Concomitant]

REACTIONS (1)
  - NEPHROGENIC SYSTEMIC FIBROSIS [None]
